FAERS Safety Report 8097389-1 (Version None)
Quarter: 2012Q1

REPORT INFORMATION
  Report Type: 
  Country: None (occurrence: None)
  Receive Date: 20120128
  Receipt Date: 20110622
  Transmission Date: 20120608
  Serious: No
  Sender: FDA-Public Use
  Company Number: US-ABBOTT-11P-163-0734501-00

PATIENT
  Sex: Male

DRUGS (9)
  1. HUMIRA [Suspect]
  2. IMURAN [Concomitant]
     Indication: CROHN'S DISEASE
  3. CALCIUM [Concomitant]
     Indication: PRODUCT USED FOR UNKNOWN INDICATION
  4. MULTI-VITAMIN [Concomitant]
     Indication: PRODUCT USED FOR UNKNOWN INDICATION
  5. IBUPROFEN (ADVIL) [Concomitant]
     Indication: PAIN
  6. VITAMIN B COMPLEX CAP [Concomitant]
     Indication: PRODUCT USED FOR UNKNOWN INDICATION
  7. VITAMIN D [Concomitant]
     Indication: VITAMIN SUPPLEMENTATION
  8. HUMIRA [Suspect]
     Indication: CROHN'S DISEASE
     Dates: start: 20110614, end: 20110614
  9. AMOXICILLIN [Concomitant]
     Indication: INFECTION

REACTIONS (3)
  - INJECTION SITE PAIN [None]
  - GASTROINTESTINAL INFECTION [None]
  - DRUG INEFFECTIVE [None]
